FAERS Safety Report 25001062 (Version 1)
Quarter: 2025Q1

REPORT INFORMATION
  Report Type: Spontaneous
  Country: US (occurrence: US)
  Receive Date: 20250222
  Receipt Date: 20250222
  Transmission Date: 20250409
  Serious: No
  Sender: SANOFI AVENTIS
  Company Number: US-SA-2025SA053744

PATIENT
  Age: 51 Year
  Sex: Female

DRUGS (1)
  1. DUPIXENT [Suspect]
     Active Substance: DUPILUMAB
     Indication: Asthma
     Dosage: 300 MG, QOW
     Route: 058
     Dates: start: 202206, end: 202411

REACTIONS (6)
  - Rebound eczema [Unknown]
  - Erythema [Unknown]
  - Skin swelling [Unknown]
  - Asthma [Unknown]
  - Eosinophil count increased [Unknown]
  - Rebound effect [Unknown]
